FAERS Safety Report 9219492 (Version 1)
Quarter: 2013Q1

REPORT INFORMATION
  Report Type: Spontaneous
  Country: US (occurrence: None)
  Receive Date: 20120828
  Receipt Date: 20120828
  Transmission Date: 20140127
  Serious: Yes (Hospitalization)
  Sender: FDA-Public Use
  Company Number: 2011BH027600

PATIENT
  Age: 49 Year
  Sex: Male
  Weight: 88.6 kg

DRUGS (2)
  1. KLOVIG LIQUID_10%_SOLUTION FOR INFUSION_VIAL, GLASS (IMMUNOGLOBULIN, NORMAL HUMAN) (SOLULTION FOR INFUSION) [Suspect]
     Indication: IMMUNODEFICIENCY COMMON VARIABLE
     Dosage: 70 GM, 1 IN 4 WK,
     Route: 042
     Dates: start: 20110722, end: 20110722
  2. BENADRYL [Concomitant]

REACTIONS (6)
  - Chest pain [None]
  - Dyspnoea [None]
  - Chest discomfort [None]
  - Cough [None]
  - Flushing [None]
  - Hyperhidrosis [None]
